FAERS Safety Report 12079613 (Version 1)
Quarter: 2016Q1

REPORT INFORMATION
  Report Type: Spontaneous
  Country: US (occurrence: US)
  Receive Date: 20160216
  Receipt Date: 20160216
  Transmission Date: 20160526
  Serious: Yes (Other)
  Sender: FDA-Public Use
  Company Number: US-AUROBINDO-AUR-APL-2016-01105

PATIENT
  Age: 24 Year
  Sex: Female

DRUGS (4)
  1. LEVETIRACETAM 250MG [Suspect]
     Active Substance: LEVETIRACETAM
     Indication: SEIZURE
     Dosage: 250 MG, TWO TIMES A DAY
     Route: 065
  2. LEVETIRACETAM 250MG [Suspect]
     Active Substance: LEVETIRACETAM
     Dosage: 1000 MG, TWO TIMES A DAY
     Route: 065
  3. LEVETIRACETAM 250MG [Suspect]
     Active Substance: LEVETIRACETAM
     Dosage: 500 MG, TWO TIMES A DAY
     Route: 065
  4. CARBAMAZEPINE. [Concomitant]
     Active Substance: CARBAMAZEPINE
     Indication: PRODUCT USED FOR UNKNOWN INDICATION
     Dosage: UNK
     Route: 065

REACTIONS (2)
  - Torsade de pointes [Unknown]
  - Electrocardiogram QT prolonged [Unknown]
